FAERS Safety Report 7288889-2 (Version None)
Quarter: 2011Q1

REPORT INFORMATION
  Report Type: 
  Country: None (occurrence: None)
  Receive Date: 20110211
  Receipt Date: 20110207
  Transmission Date: 20110831
  Serious: Yes (Other)
  Sender: FDA-Public Use
  Company Number: JP-PFIZER INC-2010113718

PATIENT
  Age: 66 Year
  Sex: Female

DRUGS (6)
  1. LENDORM [Concomitant]
     Route: 048
  2. PREDONINE [Concomitant]
  3. TAKEPRON [Concomitant]
  4. DEPROMEL [Concomitant]
     Route: 048
  5. VFEND [Suspect]
     Indication: FUNGAL INFECTION
     Dosage: 200 MG/DAY
     Route: 048
     Dates: start: 20100715, end: 20100728
  6. VFEND [Suspect]
     Indication: ASPERGILLOSIS

REACTIONS (3)
  - SPEECH DISORDER [None]
  - PHOTOPHOBIA [None]
  - SOMNOLENCE [None]
